FAERS Safety Report 17576867 (Version 1)
Quarter: 2020Q1

REPORT INFORMATION
  Report Type: Spontaneous
  Country: US (occurrence: US)
  Receive Date: 20200319
  Receipt Date: 20200319
  Transmission Date: 20200409
  Serious: No
  Sender: FDA-Public Use
  Company Number: None

PATIENT
  Age: 58 Year
  Sex: Male

DRUGS (1)
  1. CAPECITABINE 500MG NOVADOZ PHARMACEUTICALS [Suspect]
     Active Substance: CAPECITABINE
     Indication: AGRANULOCYTOSIS
     Route: 048
     Dates: start: 20191130

REACTIONS (6)
  - Epistaxis [None]
  - Stomatitis [None]
  - Skin exfoliation [None]
  - Burning sensation [None]
  - Diarrhoea [None]
  - Eye irritation [None]

NARRATIVE: CASE EVENT DATE: 20191205
